FAERS Safety Report 6235816-2 (Version None)
Quarter: 2009Q2

REPORT INFORMATION
  Report Type: 
  Country: None (occurrence: None)
  Receive Date: 20090619
  Receipt Date: 20090612
  Transmission Date: 20091009
  Serious: Yes (Death, Disabling)
  Sender: FDA-Public Use
  Company Number: JP-PFIZER INC-2009180929

PATIENT
  Age: 61 Year

DRUGS (11)
  1. SUNITINIB MALATE [Suspect]
     Indication: RENAL CELL CARCINOMA
     Dosage: 50 MG, 1X/DAY
     Route: 048
     Dates: start: 20090127, end: 20090223
  2. CELECOXIB [Concomitant]
     Indication: PAIN
     Dosage: 200 MG, 2X/DAY
     Route: 048
     Dates: start: 20090127
  3. CELECOXIB [Concomitant]
     Indication: PYREXIA
  4. HYPEN [Concomitant]
     Indication: PAIN
     Dosage: 400 MG, 2X/DAY
     Route: 048
     Dates: start: 20090128
  5. HYPEN [Concomitant]
     Indication: PYREXIA
  6. NEO-MINOPHAGEN C [Concomitant]
     Route: 042
     Dates: start: 20090204, end: 20090209
  7. TAKEPRON [Concomitant]
     Route: 048
     Dates: start: 20090128
  8. BIOFERMIN [Concomitant]
     Route: 048
     Dates: start: 20090131
  9. AZUNOL #1 [Concomitant]
     Route: 049
     Dates: start: 20090209
  10. FUNGIZONE [Concomitant]
     Route: 048
     Dates: start: 20090209
  11. PROMAC /JPN/ [Concomitant]
     Indication: GASTRITIS
     Route: 048
     Dates: start: 20090209

REACTIONS (3)
  - DISEASE PROGRESSION [None]
  - HAEMATURIA [None]
  - RENAL CELL CARCINOMA [None]
